FAERS Safety Report 25974444 (Version 1)
Quarter: 2025Q4

REPORT INFORMATION
  Report Type: Spontaneous
  Country: US (occurrence: None)
  Receive Date: 20251029
  Receipt Date: 20251029
  Transmission Date: 20260118
  Serious: Yes (Hospitalization, Disabling, Other)
  Sender: FDA-CTU
  Company Number: None

PATIENT
  Age: 38 Year
  Sex: Female
  Weight: 60.75 kg

DRUGS (1)
  1. EMGALITY [Suspect]
     Active Substance: GALCANEZUMAB-GNLM

REACTIONS (17)
  - Loss of personal independence in daily activities [None]
  - Impaired driving ability [None]
  - Anxiety [None]
  - Panic attack [None]
  - Dyspepsia [None]
  - Pain [None]
  - Vertigo [None]
  - Headache [None]
  - Paraesthesia [None]
  - Hypoaesthesia [None]
  - Peripheral coldness [None]
  - Palpitations [None]
  - Dizziness [None]
  - Muscle twitching [None]
  - Chest discomfort [None]
  - Feeling abnormal [None]
  - Therapy cessation [None]

NARRATIVE: CASE EVENT DATE: 20250818
